FAERS Safety Report 6336843-7 (Version None)
Quarter: 2009Q3

REPORT INFORMATION
  Report Type: 
  Country: None (occurrence: None)
  Receive Date: 20090901
  Receipt Date: 20090826
  Transmission Date: 20100115
  Serious: Yes (Other)
  Sender: FDA-Public Use
  Company Number: US-BAYER-200913427BCC

PATIENT

DRUGS (3)
  1. ASPIRIN [Suspect]
     Indication: UNEVALUABLE EVENT
     Route: 048
  2. PLAVIX [Suspect]
     Indication: UNEVALUABLE EVENT
     Route: 048
  3. FISH OIL [Concomitant]
     Route: 065

REACTIONS (1)
  - OPERATIVE HAEMORRHAGE [None]
